FAERS Safety Report 21898639 (Version 2)
Quarter: 2023Q1

REPORT INFORMATION
  Report Type: Spontaneous
  Country: IT (occurrence: IT)
  Receive Date: 20230123
  Receipt Date: 20230130
  Transmission Date: 20230417
  Serious: Yes (Other)
  Sender: FDA-Public Use
  Company Number: IT-ROCHE-3259824

PATIENT
  Age: 53 Year
  Sex: Male
  Weight: 78 kg

DRUGS (17)
  1. BENDAMUSTINE HYDROCHLORIDE [Suspect]
     Active Substance: BENDAMUSTINE HYDROCHLORIDE
     Indication: Follicular lymphoma
     Dosage: 1ST LINE SYSTEMIC TREATMENT: BENDAMUSTINE BASED REGIMEN (E.G. BR))
     Route: 042
     Dates: start: 201903, end: 201909
  2. LENALIDOMIDE [Suspect]
     Active Substance: LENALIDOMIDE
     Indication: Follicular lymphoma
     Dosage: (4TH LINE SYSTEMIC TREATMENT: R + LENALIDOMIDE + TAFASITAMAB/PLACEBO)
     Route: 065
     Dates: start: 202112, end: 202202
  3. EPIRUBICIN [Suspect]
     Active Substance: EPIRUBICIN
     Indication: Follicular lymphoma
     Dosage: (3RD LINE SYSTEMIC TREATMENT: R-IEV)EPIRUBICIN;ETOPOSIDE;IFOSFAMIDE
     Route: 065
     Dates: start: 202104, end: 202106
  4. DOXORUBICIN HYDROCHLORIDE [Suspect]
     Active Substance: DOXORUBICIN HYDROCHLORIDE
     Indication: Follicular lymphoma
     Dosage: (2ND LINE SYSTEMIC TREATMENT: R-CHOP)CHOP
     Route: 065
     Dates: start: 202006, end: 202006
  5. VINCRISTINE SULFATE [Suspect]
     Active Substance: VINCRISTINE SULFATE
     Indication: Follicular lymphoma
     Dosage: (2ND LINE SYSTEMIC TREATMENT: R-CHOP)CHOP
     Route: 065
     Dates: start: 202006, end: 202006
  6. ETOPOSIDE [Suspect]
     Active Substance: ETOPOSIDE
     Indication: Follicular lymphoma
     Dosage: (3RD LINE SYSTEMIC TREATMENT: R-IEV)EPIRUBICIN;ETOPOSIDE;IFOSFAMIDE
     Route: 065
     Dates: start: 202104, end: 202106
  7. PREDNISONE [Suspect]
     Active Substance: PREDNISONE
     Indication: Follicular lymphoma
     Dosage: (2ND LINE SYSTEMIC TREATMENT: R-CHOP)CHOP
     Route: 065
     Dates: start: 202006, end: 202006
  8. IFOSFAMIDE [Suspect]
     Active Substance: IFOSFAMIDE
     Indication: Follicular lymphoma
     Dosage: (3RD LINE SYSTEMIC TREATMENT: R-IEV)EPIRUBICIN;ETOPOSIDE;IFOSFAMIDE
     Route: 065
     Dates: start: 202104, end: 202106
  9. CYCLOPHOSPHAMIDE [Suspect]
     Active Substance: CYCLOPHOSPHAMIDE
     Indication: Follicular lymphoma
     Dosage: (2ND LINE SYSTEMIC TREATMENT: R-CHOP)CHOP
     Route: 065
     Dates: start: 202006, end: 202006
  10. TAFASITAMAB-CXIX [Suspect]
     Active Substance: TAFASITAMAB-CXIX
     Indication: Follicular lymphoma
     Dosage: (4TH LINE SYSTEMIC TREATMENT: R + LENALIDOMIDE + TAFASITAMAB/PLACEBO)
     Route: 065
     Dates: start: 202112, end: 202202
  11. RITUXIMAB [Suspect]
     Active Substance: RITUXIMAB
     Indication: Follicular lymphoma
     Dosage: (1ST LINE SYSTEMIC TREATMENT: BENDAMUSTINE BASED REGIMEN (E.G. BR))
     Route: 065
     Dates: start: 201903, end: 201909
  12. RITUXIMAB [Suspect]
     Active Substance: RITUXIMAB
     Dosage: (2ND LINE SYSTEMIC TREATMENT: R-CHOP)
     Route: 065
     Dates: start: 202006, end: 202006
  13. RITUXIMAB [Suspect]
     Active Substance: RITUXIMAB
     Dosage: (3RD LINE SYSTEMIC TREATMENT: R-IEV)
     Route: 065
     Dates: start: 202104, end: 202106
  14. RITUXIMAB [Suspect]
     Active Substance: RITUXIMAB
     Dosage: (4TH LINE SYSTEMIC TREATMENT: R + LENALIDOMIDE + TAFASITAMAB/PLACEBO)
     Route: 065
     Dates: start: 202112, end: 202202
  15. PIRTOBRUTINIB [Suspect]
     Active Substance: PIRTOBRUTINIB
     Indication: Follicular lymphoma
     Dosage: (5TH LINE SYSTEMIC TREATMENT: PIRTOBRUTINIB)
     Route: 065
     Dates: start: 20220301, end: 20230101
  16. BACTRIM [Concomitant]
     Active Substance: SULFAMETHOXAZOLE\TRIMETHOPRIM
     Indication: Product used for unknown indication
     Route: 065
  17. VITAMIN D [Concomitant]
     Active Substance: VITAMIN D NOS
     Indication: Product used for unknown indication
     Route: 065

REACTIONS (3)
  - Malignant neoplasm progression [Unknown]
  - Product use issue [Unknown]
  - Off label use [Unknown]

NARRATIVE: CASE EVENT DATE: 20190301
